FAERS Safety Report 4826017-0 (Version None)
Quarter: 2005Q4

REPORT INFORMATION
  Report Type: 
  Country: None (occurrence: None)
  Receive Date: 20051111
  Receipt Date: 20050630
  Transmission Date: 20060501
  Serious: Yes (Hospitalization)
  Sender: FDA-Public Use
  Company Number: US-MERCK-0507USA00198

PATIENT
  Age: 59 Year
  Sex: Female
  Weight: 64 kg

DRUGS (10)
  1. VIOXX [Suspect]
     Indication: OSTEOARTHRITIS
     Route: 048
     Dates: start: 20010808, end: 20040901
  2. VIOXX [Suspect]
     Route: 048
     Dates: start: 20010808, end: 20040901
  3. VIOXX [Suspect]
     Route: 048
     Dates: start: 20010808, end: 20040901
  4. VIOXX [Suspect]
     Indication: BURSITIS
     Route: 048
     Dates: start: 20010808, end: 20040901
  5. VIOXX [Suspect]
     Route: 048
     Dates: start: 20010808, end: 20040901
  6. VIOXX [Suspect]
     Route: 048
     Dates: start: 20010808, end: 20040901
  7. LOMOTIL [Concomitant]
     Route: 065
  8. MEDROXYPROGESTERONE ACETATE [Concomitant]
     Route: 065
  9. ESTRATEST [Concomitant]
     Route: 065
  10. ZYBAN [Concomitant]
     Route: 065

REACTIONS (6)
  - BUNION [None]
  - COLITIS [None]
  - MYOCARDIAL INFARCTION [None]
  - PATELLOFEMORAL PAIN SYNDROME [None]
  - SYNOVITIS [None]
  - TENDONITIS [None]
